FAERS Safety Report 5581629-4 (Version None)
Quarter: 2008Q1

REPORT INFORMATION
  Report Type: 
  Country: None (occurrence: None)
  Receive Date: 20080102
  Receipt Date: 20080102
  Transmission Date: 20080703
  Serious: Yes (Hospitalization)
  Sender: FDA-Public Use
  Company Number: None

PATIENT
  Age: 72 Year
  Sex: Female
  Weight: 86.7 kg

DRUGS (40)
  1. ENOXAPARIN SODIUM [Suspect]
     Indication: PULMONARY EMBOLISM
     Dosage: 1 MG/KG BID - SUBCUTANEOUS
     Route: 058
     Dates: start: 20071116
  2. PLACEBO SSR126517+WARFARIN - FORM : UNKNOWN - UNIT DOSE : UNKNOWN [Suspect]
     Indication: PULMONARY EMBOLISM
     Dosage: 3 MG OF 1/WEEK SC SSR126517 + PLACEBO WARFARIN VERSUS PLACEBO SSR126517 + ORAL INR-ADJUSTED WARFARIN
     Dates: start: 20071117
  3. ALBUTEROL [Concomitant]
  4. IPRATROPIUM BROMIDE [Concomitant]
  5. PHENYTOIN SODIUM [Concomitant]
  6. AAS/ DIPYRIDAMOLE [Concomitant]
  7. AMITRIPTYLINE HYDROCHLORIDE [Concomitant]
  8. METOPROLOL TARTRATE [Concomitant]
  9. FLUTICAZONE/SALMETEROL [Concomitant]
  10. VALPROATE SODIUM [Concomitant]
  11. LORAZEPAM [Concomitant]
  12. PARACETAMOL [Concomitant]
  13. ZOLPIDEM TARTRATE [Concomitant]
  14. GLYCERYL TRINITRATE [Concomitant]
  15. HYDROMORPHONE HCL [Concomitant]
  16. LORATADINE [Concomitant]
  17. PREDNISONE TAB [Concomitant]
  18. CALCIUM CARBONATE [Concomitant]
  19. ROPINIROLE HCL [Concomitant]
  20. VITAMIN CAP [Concomitant]
  21. PANTOPRAZOLE SODIUM [Concomitant]
  22. FUROSEMIDE [Concomitant]
  23. AMLODIPINE BESYLATE [Concomitant]
  24. ACETYLSALICYLIC ACID SRT [Concomitant]
  25. TIOTROPIUM BROMIDE [Concomitant]
  26. MOMETASONE FUROATE [Concomitant]
  27. CALCITONIN-SALMON [Concomitant]
  28. OLMESARTAN MEDOXOMIL [Concomitant]
  29. PHENOBARBITAL SODIUM 100MG CAP [Concomitant]
  30. DEXAMETHASONE TAB [Concomitant]
  31. LEVOFLOXACIN [Concomitant]
  32. DIPHENHYDRAMINE HYDROCHLORIDE [Concomitant]
  33. SODIUM POLYSTYRENE SULFONATE [Concomitant]
  34. DOCUSATE CALCIUM [Concomitant]
  35. ACETAMINOPHEN AND HYDROCODONE BITARTRATE [Concomitant]
  36. FLUCONAZOLE [Concomitant]
  37. BETAMETHASONE/CLOTRIMAZOLE [Concomitant]
  38. NITROFURANTOIN [Concomitant]
  39. HYDRALAZINE [Concomitant]
  40. PREDNISONE TAB [Concomitant]

REACTIONS (11)
  - ANAEMIA [None]
  - ASTHENIA [None]
  - CARDIAC FAILURE [None]
  - DYSPNOEA [None]
  - HAEMORRHAGE [None]
  - INTERNATIONAL NORMALISED RATIO INCREASED [None]
  - OCCULT BLOOD POSITIVE [None]
  - PNEUMONIA [None]
  - PULMONARY EMBOLISM [None]
  - URINARY TRACT INFECTION [None]
  - WHITE BLOOD CELL COUNT INCREASED [None]
